FAERS Safety Report 5047235-5 (Version None)
Quarter: 2006Q3

REPORT INFORMATION
  Report Type: 
  Country: None (occurrence: None)
  Receive Date: 20060703
  Receipt Date: 20060623
  Transmission Date: 20061208
  Serious: Yes (Hospitalization, Other)
  Sender: FDA-Public Use
  Company Number: 163-20785-06030633

PATIENT
  Age: 83 Year

DRUGS (10)
  1. THALOMID [Suspect]
     Indication: DRUG USE FOR UNKNOWN INDICATION
     Dosage: 100 MG, DAILY, ORAL
     Route: 048
     Dates: start: 20050329, end: 20060302
  2. TEMODAR [Suspect]
     Indication: DRUG USE FOR UNKNOWN INDICATION
  3. ZITHROMAX [Concomitant]
  4. DOXYCYCLINE [Concomitant]
  5. FLONASE [Concomitant]
  6. ZYRTEC [Concomitant]
  7. ATROVENT (IPRATROPIUM BROMIDE) (NASAL DROPS (INCLUDING NASAL SPRAY) [Concomitant]
  8. HYTRIN [Concomitant]
  9. GPM [Concomitant]
  10. ALTACE [Concomitant]

REACTIONS (7)
  - BRONCHITIS ACUTE [None]
  - BRONCHOSPASM [None]
  - PNEUMONITIS [None]
  - PULMONARY HAEMORRHAGE [None]
  - PULMONARY TOXICITY [None]
  - RHINITIS [None]
  - RHINITIS ALLERGIC [None]
